FAERS Safety Report 16590951 (Version 2)
Quarter: 2019Q4

REPORT INFORMATION
  Report Type: Spontaneous
  Country: IT (occurrence: IT)
  Receive Date: 20190718
  Receipt Date: 20191029
  Transmission Date: 20200122
  Serious: Yes (Other)
  Sender: FDA-Public Use
  Company Number: IT-PFIZER INC-2019301621

PATIENT
  Age: 54 Year
  Sex: Male

DRUGS (5)
  1. FLUOROURACIL TEVA [Suspect]
     Active Substance: FLUOROURACIL
     Dosage: 680 MG, CYCLIC
     Route: 040
     Dates: start: 20190110, end: 20190620
  2. FLUOROURACIL TEVA [Suspect]
     Active Substance: FLUOROURACIL
     Indication: COLON CANCER METASTATIC
     Dosage: 4000 MG, CYCLIC
     Route: 042
     Dates: start: 20190110, end: 20190620
  3. ZALTRAP [Suspect]
     Active Substance: ZIV-AFLIBERCEPT
     Indication: COLON CANCER METASTATIC
     Dosage: 240 MG, CYCLIC
     Route: 042
     Dates: start: 20190110, end: 20190620
  4. IRINOTECAN HCL [Suspect]
     Active Substance: IRINOTECAN HYDROCHLORIDE
     Indication: COLON CANCER METASTATIC
     Dosage: 300 MG, CYCLIC
     Route: 042
     Dates: start: 20190110, end: 20190620
  5. DOXIFLURIDINE [Suspect]
     Active Substance: DOXIFLURIDINE
     Indication: COLON CANCER METASTATIC
     Dosage: 680 MG, CYCLIC
     Route: 040
     Dates: start: 20190110, end: 20190620

REACTIONS (2)
  - Hyperbilirubinaemia [Not Recovered/Not Resolved]
  - Anaemia [Not Recovered/Not Resolved]

NARRATIVE: CASE EVENT DATE: 20190617
